FAERS Safety Report 8152744-6 (Version None)
Quarter: 2012Q1

REPORT INFORMATION
  Report Type: 
  Country: None (occurrence: None)
  Receive Date: 20120221
  Receipt Date: 20120209
  Transmission Date: 20120608
  Serious: Yes (Other)
  Sender: FDA-Public Use
  Company Number: US-JNJFOC-20120206042

PATIENT
  Age: 64 Year
  Sex: Female
  Weight: 67.59 kg

DRUGS (8)
  1. TYLENOL COLD MULTI-SYMPTOM DAYTIME RAPID RELEASE [Suspect]
     Indication: RHINORRHOEA
     Route: 048
     Dates: start: 20120207, end: 20120201
  2. VITAMIN D [Concomitant]
     Indication: PRODUCT USED FOR UNKNOWN INDICATION
     Route: 065
  3. TYLENOL COLD MULTI-SYMPTOM DAYTIME RAPID RELEASE [Suspect]
     Indication: NASOPHARYNGITIS
     Route: 048
     Dates: start: 20120207, end: 20120201
  4. VOLTAREN [Concomitant]
     Indication: ARTHRITIS
     Route: 065
  5. TYLENOL COLD MULTI-SYMPTOM NIGHTTIME RAPID RELEASE [Suspect]
     Indication: RHINORRHOEA
     Route: 048
     Dates: start: 20120207, end: 20120201
  6. SIMVASTATIN [Concomitant]
     Indication: BLOOD CHOLESTEROL INCREASED
     Route: 065
  7. TYLENOL COLD MULTI-SYMPTOM NIGHTTIME RAPID RELEASE [Suspect]
     Indication: NASOPHARYNGITIS
     Route: 048
     Dates: start: 20120207, end: 20120201
  8. CALCIUM [Concomitant]
     Indication: PRODUCT USED FOR UNKNOWN INDICATION
     Route: 065

REACTIONS (5)
  - LOSS OF CONSCIOUSNESS [None]
  - HYPERTENSION [None]
  - EXPIRED DRUG ADMINISTERED [None]
  - URINARY INCONTINENCE [None]
  - VOMITING [None]
